FAERS Safety Report 6408869-6 (Version None)
Quarter: 2009Q4

REPORT INFORMATION
  Report Type: 
  Country: None (occurrence: None)
  Receive Date: 20091019
  Receipt Date: 20091002
  Transmission Date: 20100525
  Serious: Yes (Disabling)
  Sender: FDA-Public Use
  Company Number: 2009AC000094

PATIENT
  Age: 45 Year
  Sex: Female
  Weight: 45.3597 kg

DRUGS (3)
  1. DIGOXIN [Suspect]
     Dosage: 0.25 MG; QD; PO
     Route: 048
     Dates: start: 19980101, end: 20070101
  2. VENTOLIN [Concomitant]
  3. FORTICAL [Concomitant]

REACTIONS (6)
  - ABASIA [None]
  - CHEST PAIN [None]
  - MUSCLE DISORDER [None]
  - NAUSEA [None]
  - PAIN [None]
  - PALPITATIONS [None]
